FAERS Safety Report 7987971-1 (Version None)
Quarter: 2011Q4

REPORT INFORMATION
  Report Type: 
  Country: None (occurrence: None)
  Receive Date: 20111216
  Receipt Date: 20110518
  Transmission Date: 20120403
  Serious: No
  Sender: FDA-Public Use
  Company Number: US-BRISTOL-MYERS SQUIBB COMPANY-15754682

PATIENT
  Age: 6 Year
  Sex: Male

DRUGS (2)
  1. ABILIFY [Suspect]
     Indication: ANGER
     Dosage: DURATION:ATLEAST 4 MONTHS
  2. ABILIFY [Suspect]
     Indication: EMOTIONAL DISORDER
     Dosage: DURATION:ATLEAST 4 MONTHS

REACTIONS (1)
  - URINARY INCONTINENCE [None]
